FAERS Safety Report 8095375-9 (Version None)
Quarter: 2012Q1

REPORT INFORMATION
  Report Type: 
  Country: None (occurrence: None)
  Receive Date: 20120131
  Receipt Date: 20120123
  Transmission Date: 20120608
  Serious: Yes (Hospitalization)
  Sender: FDA-Public Use
  Company Number: US-NOVOPROD-343542

PATIENT
  Age: 66 Year
  Sex: Male
  Weight: 136.5 kg

DRUGS (1)
  1. NOVOLIN 70/30 [Suspect]
     Indication: TYPE 2 DIABETES MELLITUS
     Dosage: 45 U, BID
     Route: 058
     Dates: start: 20111101, end: 20120117

REACTIONS (3)
  - CEREBROVASCULAR ACCIDENT [None]
  - DRUG DISPENSING ERROR [None]
  - BLOOD GLUCOSE INCREASED [None]
